FAERS Safety Report 17923830 (Version 1)
Quarter: 2020Q2

REPORT INFORMATION
  Report Type: Spontaneous
  Country: US (occurrence: US)
  Receive Date: 20200622
  Receipt Date: 20200622
  Transmission Date: 20200714
  Serious: Yes (Hospitalization)
  Sender: FDA-Public Use
  Company Number: None

PATIENT
  Age: 56 Year
  Sex: Male
  Weight: 74.25 kg

DRUGS (3)
  1. ATORVASTATIN [Concomitant]
     Active Substance: ATORVASTATIN
  2. METFORMIN HYDROCHLORIDE EXTENDED-RELEASE TABLETS, USP 500MG [Suspect]
     Active Substance: METFORMIN HYDROCHLORIDE
     Indication: DIABETES MELLITUS
     Dosage: ?          QUANTITY:100 TABLET(S);OTHER FREQUENCY:1000MG,TWICE DAILY;?
     Route: 048
     Dates: start: 20200420, end: 20200615
  3. GLIPIZIDE. [Concomitant]
     Active Substance: GLIPIZIDE

REACTIONS (5)
  - Heart rate irregular [None]
  - Chest discomfort [None]
  - Dizziness [None]
  - Chest pain [None]
  - Poor quality sleep [None]

NARRATIVE: CASE EVENT DATE: 20200515
